FAERS Safety Report 5592813-8 (Version None)
Quarter: 2008Q1

REPORT INFORMATION
  Report Type: 
  Country: None (occurrence: None)
  Receive Date: 20080114
  Receipt Date: 20080107
  Transmission Date: 20080703
  Serious: Yes (Life-Threatening, Hospitalization, Other)
  Sender: FDA-Public Use
  Company Number: ADR0012008

PATIENT
  Age: 65 Year
  Sex: Female

DRUGS (6)
  1. CITALOPRAM (STRENGTH + MFR UNKNOWN) [Suspect]
     Indication: DEPRESSION
  2. FENTANYL [Suspect]
     Dosage: 25 MCG/HR, DERMAL PATCH
  3. RABEPRAZOLE SODIUM [Concomitant]
  4. TOLTERODINE TARTRATE [Concomitant]
  5. HYDROCODONE BITARTRATE [Concomitant]
  6. OVER-THE-COUNTER NON-STEROIDAL ANTI-INFLAMMATORY MEDICATIONS [Concomitant]

REACTIONS (11)
  - AGGRESSION [None]
  - AGITATION [None]
  - BACK PAIN [None]
  - CONFUSIONAL STATE [None]
  - DRUG INTERACTION [None]
  - GAIT DISTURBANCE [None]
  - HYPERREFLEXIA [None]
  - MYOCLONUS [None]
  - RETROPERITONEAL HAEMORRHAGE [None]
  - SEROTONIN SYNDROME [None]
  - TREMOR [None]
